FAERS Safety Report 7338239-8 (Version None)
Quarter: 2011Q1

REPORT INFORMATION
  Report Type: 
  Country: None (occurrence: None)
  Receive Date: 20110308
  Receipt Date: 20110223
  Transmission Date: 20110831
  Serious: Yes (Other)
  Sender: FDA-Public Use
  Company Number: PHHY2011US16953

PATIENT
  Age: 63 Year
  Sex: Male

DRUGS (3)
  1. MYCOPHENOLATE MOFETIL [Suspect]
  2. TACROLIMUS [Suspect]
     Indication: IMMUNOSUPPRESSION
     Dosage: UNK
  3. PREDNISONE TAB [Suspect]

REACTIONS (12)
  - PUPILLARY REFLEX IMPAIRED [None]
  - VISUAL ACUITY REDUCED [None]
  - COLOUR BLINDNESS ACQUIRED [None]
  - MUSCULAR WEAKNESS [None]
  - BLINDNESS [None]
  - TOXIC OPTIC NEUROPATHY [None]
  - C-REACTIVE PROTEIN INCREASED [None]
  - OPTIC ATROPHY [None]
  - DEMYELINATION [None]
  - COLOUR BLINDNESS [None]
  - MYOPATHY [None]
  - RETINAL INFILTRATES [None]
